FAERS Safety Report 5106747-6 (Version None)
Quarter: 2006Q3

REPORT INFORMATION
  Report Type: 
  Country: None (occurrence: None)
  Receive Date: 20060918
  Receipt Date: 20060814
  Transmission Date: 20061208
  Serious: Yes (Hospitalization)
  Sender: FDA-Public Use
  Company Number: US-AMGEN-US189940

PATIENT
  Sex: Male
  Weight: 81.7 kg

DRUGS (6)
  1. ARANESP [Suspect]
     Indication: ANAEMIA OF MALIGNANT DISEASE
     Route: 058
     Dates: start: 20060627, end: 20060725
  2. DILANTIN [Suspect]
     Dates: end: 20060726
  3. GABAPENTIN [Suspect]
     Dates: start: 20060727, end: 20060801
  4. PREDNISONE [Concomitant]
     Route: 048
  5. SYNTHROID [Concomitant]
  6. MUCINEX [Concomitant]

REACTIONS (18)
  - AURICULAR SWELLING [None]
  - BLISTER [None]
  - BLOOD CREATININE INCREASED [None]
  - BLOOD POTASSIUM INCREASED [None]
  - BLOOD SODIUM DECREASED [None]
  - BLOOD UREA INCREASED [None]
  - DRUG HYPERSENSITIVITY [None]
  - ENCEPHALITIS [None]
  - HYPERSENSITIVITY [None]
  - INJECTION SITE ERYTHEMA [None]
  - INJECTION SITE REACTION [None]
  - LETHARGY [None]
  - PLATELET COUNT DECREASED [None]
  - PYREXIA [None]
  - RASH MACULAR [None]
  - RASH PRURITIC [None]
  - SKIN EXFOLIATION [None]
  - WHITE BLOOD CELL COUNT INCREASED [None]
